FAERS Safety Report 19637164 (Version 1)
Quarter: 2021Q3

REPORT INFORMATION
  Report Type: Spontaneous
  Country: AU (occurrence: AU)
  Receive Date: 20210730
  Receipt Date: 20210730
  Transmission Date: 20211014
  Serious: Yes (Hospitalization)
  Sender: FDA-Public Use
  Company Number: AU-BAXTER-2021BAX022348

PATIENT
  Sex: Male

DRUGS (15)
  1. SYNTHAMIN [Suspect]
     Active Substance: AMINO ACIDS
     Indication: PARENTERAL NUTRITION
     Dosage: CENTRAL LINE
     Route: 042
     Dates: start: 20210720
  2. POTASSIUM CHLORIDE. [Suspect]
     Active Substance: POTASSIUM CHLORIDE
     Indication: PARENTERAL NUTRITION
     Dosage: 3 MMOL/ML?CENTRAL LINE
     Route: 042
     Dates: start: 20210720
  3. WATER FOR INJECTION [Suspect]
     Active Substance: WATER
     Indication: PARENTERAL NUTRITION
     Dosage: CENTRAL LINE
     Route: 042
     Dates: start: 20210720
  4. SODIUM CHLORIDE. [Suspect]
     Active Substance: SODIUM CHLORIDE
     Indication: PARENTERAL NUTRITION
     Dosage: 4 MMOL/ML?CENTRAL LINE
     Route: 042
     Dates: start: 20210720
  5. HEPARIN SODIUM. [Suspect]
     Active Substance: HEPARIN SODIUM
     Indication: PARENTERAL NUTRITION
     Dosage: CENTRAL LINE
     Route: 042
     Dates: start: 20210720
  6. STERILE WATER [Suspect]
     Active Substance: WATER
     Indication: PARENTERAL NUTRITION
     Dosage: CENTRAL LINE
     Route: 042
     Dates: start: 20210720
  7. SMOFLIPID [Suspect]
     Active Substance: FISH OIL\MEDIUM-CHAIN TRIGLYCERIDES\OLIVE OIL\SOYBEAN OIL
     Indication: PARENTERAL NUTRITION
     Dosage: CENTRAL LINE
     Route: 042
     Dates: start: 20210720
  8. MAGNESIUM SULFATE. [Suspect]
     Active Substance: MAGNESIUM SULFATE
     Indication: PARENTERAL NUTRITION
     Dosage: 2 MMOL/ML?CENTRAL LINE
     Route: 042
     Dates: start: 20210720
  9. VITAMIN K [Suspect]
     Active Substance: PHYTONADIONE
     Indication: PARENTERAL NUTRITION
     Dosage: CENTRAL LINE
     Route: 042
     Dates: start: 20210720
  10. CERNEVIT [Suspect]
     Active Substance: VITAMINS
     Indication: PARENTERAL NUTRITION
     Dosage: CENTRAL LINE
     Route: 042
     Dates: start: 20210720
  11. CALCIUM GLUCONATE. [Suspect]
     Active Substance: CALCIUM GLUCONATE
     Indication: PARENTERAL NUTRITION
     Dosage: 0.22 MMOL/ML?CENTRAL LINE
     Route: 042
     Dates: start: 20210720
  12. TPN GLUCOSE [Suspect]
     Active Substance: DEXTROSE
     Indication: PARENTERAL NUTRITION
     Dosage: CENTRAL LINE
     Route: 042
     Dates: start: 20210720
  13. SODIUM ACETATE. [Suspect]
     Active Substance: SODIUM ACETATE
     Indication: PARENTERAL NUTRITION
     Dosage: 2MMOL/ML?CENTRAL LINE
     Route: 042
     Dates: start: 20210720
  14. AUSPEN TRACE ELEMENTS [Suspect]
     Active Substance: MINERALS
     Indication: PARENTERAL NUTRITION
     Dosage: CENTRAL LINE
     Route: 042
     Dates: start: 20210720
  15. POTASSIUM DI?H PHOSPHATE [Suspect]
     Active Substance: POTASSIUM PHOSPHATE, MONOBASIC
     Indication: PARENTERAL NUTRITION
     Dosage: 1 MMOL/ML?CENTRAL LINE
     Route: 042
     Dates: start: 20210720

REACTIONS (3)
  - Air embolism [Unknown]
  - Cough [Unknown]
  - Product administration error [Unknown]

NARRATIVE: CASE EVENT DATE: 20210720
